FAERS Safety Report 9479156 (Version 1)
Quarter: 2013Q3

REPORT INFORMATION
  Report Type: Report from Study
  Country: BE (occurrence: BE)
  Receive Date: 20130827
  Receipt Date: 20130827
  Transmission Date: 20140515
  Serious: Yes (Hospitalization)
  Sender: FDA-Public Use
  Company Number: BE-ROCHE-1266070

PATIENT
  Age: 80 Year
  Sex: Male
  Weight: 69 kg

DRUGS (18)
  1. BEVACIZUMAB [Suspect]
     Indication: COLORECTAL CANCER
     Route: 042
     Dates: start: 20130706
  2. BEVACIZUMAB [Suspect]
     Indication: HEPATIC CANCER METASTATIC
  3. BEVACIZUMAB [Suspect]
     Indication: LUNG CANCER METASTATIC
  4. IRINOTECAN [Suspect]
     Indication: COLORECTAL CANCER
     Route: 042
     Dates: start: 20130706
  5. IRINOTECAN [Suspect]
     Indication: HEPATIC CANCER METASTATIC
  6. IRINOTECAN [Suspect]
     Indication: LUNG CANCER METASTATIC
  7. LEVOFOLIC [Suspect]
     Indication: COLORECTAL CANCER
     Route: 042
     Dates: start: 20130706
  8. LEVOFOLIC [Suspect]
     Indication: HEPATIC CANCER METASTATIC
  9. LEVOFOLIC [Suspect]
     Indication: LUNG CANCER METASTATIC
  10. 5-FLUOROURACIL [Suspect]
     Indication: COLORECTAL CANCER
     Route: 040
     Dates: start: 20130706
  11. 5-FLUOROURACIL [Suspect]
     Indication: HEPATIC CANCER METASTATIC
     Route: 041
     Dates: start: 20130706
  12. 5-FLUOROURACIL [Suspect]
     Indication: LUNG CANCER METASTATIC
  13. GLUCOPHAGE [Concomitant]
     Indication: DIABETES MELLITUS
     Route: 048
     Dates: start: 2008
  14. SIMVASTATINE [Concomitant]
     Indication: HYPERCHOLESTEROLAEMIA
     Route: 048
     Dates: start: 2012
  15. ASAFLOW [Concomitant]
     Indication: CARDIAC DISORDER
     Route: 048
     Dates: start: 2008
  16. TERAZOSINE [Concomitant]
     Indication: PROSTATIC DISORDER
     Route: 048
     Dates: start: 2008
  17. OMEPRAZOL [Concomitant]
     Indication: ULCER
     Route: 048
     Dates: start: 2012
  18. COVERSYL [Concomitant]
     Indication: CARDIAC DISORDER
     Route: 048
     Dates: start: 2008

REACTIONS (5)
  - Abdominal pain [Recovered/Resolved]
  - Diarrhoea [Not Recovered/Not Resolved]
  - Colitis [Recovered/Resolved]
  - Neutropenia [Recovered/Resolved]
  - Iron deficiency anaemia [Unknown]
